FAERS Safety Report 8605873 (Version 2)
Quarter: 2014Q3

REPORT INFORMATION
  Report Type: Report from Study
  Country: FR (occurrence: FR)
  Receive Date: 20120608
  Receipt Date: 20140717
  Transmission Date: 20150326
  Serious: Yes (Hospitalization, Other)
  Sender: FDA-Public Use
  Company Number: FR-ROCHE-1075240

PATIENT
  Age: 46 Year
  Sex: Female

DRUGS (16)
  1. ROACTEMRA [Suspect]
     Active Substance: TOCILIZUMAB
     Indication: MIXED CONNECTIVE TISSUE DISEASE
  2. LEVOTHYROX [Concomitant]
     Active Substance: LEVOTHYROXINE
     Route: 065
  3. CORTANCYL [Concomitant]
     Active Substance: PREDNISONE
     Route: 065
  4. CALCIT [Concomitant]
     Dosage: CALCIT D3
     Route: 065
  5. ROACTEMRA [Suspect]
     Active Substance: TOCILIZUMAB
     Indication: RHEUMATOID ARTHRITIS
     Dosage: THEN ADMINISTERED ON 06-OCT-2011, 15-NOV-2011, 15-DEC-2011, 20-JAN-2012, 23-FEB-2012,
     Route: 042
     Dates: start: 20110901
  6. CORTANCYL [Concomitant]
     Active Substance: PREDNISONE
     Route: 065
     Dates: start: 20110905
  7. LEVOTHYROX [Concomitant]
     Active Substance: LEVOTHYROXINE
     Dosage: LEVOTHYROX 160
     Route: 065
  8. UVEDOSE [Concomitant]
     Active Substance: CHOLECALCIFEROL
     Route: 065
  9. KINERET [Concomitant]
     Active Substance: ANAKINRA
     Route: 065
     Dates: start: 201212
  10. ROACTEMRA [Suspect]
     Active Substance: TOCILIZUMAB
     Indication: SYSTEMIC LUPUS ERYTHEMATOSUS
  11. PARACETAMOL [Concomitant]
     Active Substance: ACETAMINOPHEN
     Route: 065
  12. INEXIUM [Concomitant]
     Active Substance: ESOMEPRAZOLE
     Dosage: INEXIUM 20
     Route: 065
  13. CORTANCYL [Concomitant]
     Active Substance: PREDNISONE
     Route: 065
  14. PLAQUENIL [Concomitant]
     Active Substance: HYDROXYCHLOROQUINE SULFATE
     Route: 065
  15. CALCIT [Concomitant]
     Route: 065
  16. ICAZ [Concomitant]
     Active Substance: ISRADIPINE

REACTIONS (10)
  - Skin lesion [Recovered/Resolved]
  - Pharyngitis [Recovered/Resolved]
  - Rash maculo-papular [Recovered/Resolved]
  - Arthralgia [Recovered/Resolved]
  - Osteoarthritis [Recovered/Resolved]
  - Odynophagia [Recovered/Resolved]
  - Erysipelas [Recovered/Resolved]
  - Pyrexia [Recovered/Resolved]
  - Rash [Recovered/Resolved]
  - Chronic cutaneous lupus erythematosus [Not Recovered/Not Resolved]

NARRATIVE: CASE EVENT DATE: 20110905
